FAERS Safety Report 10367269 (Version 4)
Quarter: 2015Q4

REPORT INFORMATION
  Report Type: Spontaneous
  Country: AR (occurrence: AR)
  Receive Date: 20140807
  Receipt Date: 20151231
  Transmission Date: 20160304
  Serious: Yes (Hospitalization, Other)
  Sender: FDA-Public Use
  Company Number: AR-AMGEN-ARGSP2014059846

PATIENT
  Age: 65 Year
  Sex: Female

DRUGS (17)
  1. NEUR-AMYL [Concomitant]
     Dosage: 2 MG, UNK
     Dates: start: 2010
  2. NEXIUM [Concomitant]
     Active Substance: ESOMEPRAZOLE MAGNESIUM
     Dosage: 40 MG, UNK
     Dates: start: 2009
  3. NABILA [Concomitant]
     Dosage: 10 MG, UNK
     Dates: start: 2015
  4. ATLANSIL                           /00133101/ [Concomitant]
     Dosage: UNK
  5. ERYTHROPOIETIN [Concomitant]
     Active Substance: ERYTHROPOIETIN
     Dosage: UNK
  6. PARACETAMOL [Concomitant]
     Active Substance: ACETAMINOPHEN
     Dosage: 10 MG, DAILY
     Dates: start: 2010
  7. ACIFOL                             /00024201/ [Concomitant]
     Dosage: 10 UNK, UNK
     Dates: start: 2000
  8. ATLANSIL                           /00133101/ [Concomitant]
     Dosage: UNK
  9. NEXIUM [Concomitant]
     Active Substance: ESOMEPRAZOLE MAGNESIUM
     Dosage: 40 MG, UNK
     Dates: start: 2009
  10. ERYTHROPOIETIN [Concomitant]
     Active Substance: ERYTHROPOIETIN
     Dosage: UNK
  11. AMPLIAR [Concomitant]
     Dosage: 10 UNK, UNK
     Dates: start: 2015
  12. NIMO [Concomitant]
     Dosage: UNK
  13. ISLOTIN [Concomitant]
     Dosage: UNK
     Dates: start: 2004
  14. ACIFOL                             /00024201/ [Concomitant]
     Dosage: 10 UNK, UNK
     Dates: start: 2000
  15. ENBREL [Suspect]
     Active Substance: ETANERCEPT
     Indication: RHEUMATOID ARTHRITIS
     Dosage: 50 MG, WEEKLY
     Route: 065
     Dates: start: 20000504
  16. METHOTREXATE SODIUM. [Suspect]
     Active Substance: METHOTREXATE SODIUM
     Indication: PRODUCT USED FOR UNKNOWN INDICATION
     Dosage: 75 MG, UNK
     Route: 065
     Dates: start: 1998
  17. MIOPROPAN [Concomitant]
     Dosage: 5 UNK, UNK
     Dates: start: 1985

REACTIONS (17)
  - Asthenia [Not Recovered/Not Resolved]
  - Fall [Not Recovered/Not Resolved]
  - Bone disorder [Not Recovered/Not Resolved]
  - Cardiac failure [Not Recovered/Not Resolved]
  - Somnolence [Not Recovered/Not Resolved]
  - Angina pectoris [Not Recovered/Not Resolved]
  - Abdominal discomfort [Not Recovered/Not Resolved]
  - Palpitations [Not Recovered/Not Resolved]
  - Arrhythmia [Not Recovered/Not Resolved]
  - Arthropathy [Not Recovered/Not Resolved]
  - Drug ineffective [Not Recovered/Not Resolved]
  - Diabetes mellitus [Not Recovered/Not Resolved]
  - Fatigue [Not Recovered/Not Resolved]
  - Anaemia [Not Recovered/Not Resolved]
  - Respiratory failure [Not Recovered/Not Resolved]
  - Pain [Not Recovered/Not Resolved]
  - Red blood cell abnormality [Not Recovered/Not Resolved]

NARRATIVE: CASE EVENT DATE: 2004
